FAERS Safety Report 11782331 (Version 6)
Quarter: 2016Q3

REPORT INFORMATION
  Report Type: Report from Study
  Country: JP (occurrence: JP)
  Receive Date: 20151127
  Receipt Date: 20160701
  Transmission Date: 20161109
  Serious: Yes (Hospitalization)
  Sender: FDA-Public Use
  Company Number: JP-ROCHE-1668709

PATIENT
  Age: 71 Year
  Sex: Female
  Weight: 50 kg

DRUGS (4)
  1. DERMOVATE [Concomitant]
     Active Substance: CLOBETASOL
     Indication: MALIGNANT MELANOMA
     Dosage: DOSAGE IS UNCERTAIN.
     Route: 003
     Dates: start: 20151119, end: 20160317
  2. VEMURAFENIB [Suspect]
     Active Substance: VEMURAFENIB
     Indication: MALIGNANT MELANOMA
     Route: 048
     Dates: start: 20151111, end: 20151118
  3. VEMURAFENIB [Suspect]
     Active Substance: VEMURAFENIB
     Indication: MALIGNANT MELANOMA
     Route: 048
     Dates: start: 20151201, end: 20160319
  4. ALLELOCK [Concomitant]
     Active Substance: OLOPATADINE HYDROCHLORIDE
     Indication: MALIGNANT MELANOMA
     Dosage: THE FRACTIONATION DOSE FREQUENCY IS UNCERTAIN.
     Route: 048
     Dates: start: 20151119, end: 20160317

REACTIONS (5)
  - Dysgeusia [Not Recovered/Not Resolved]
  - Renal impairment [Not Recovered/Not Resolved]
  - Myalgia [Recovered/Resolved]
  - Pyrexia [Not Recovered/Not Resolved]
  - Drug eruption [Recovered/Resolved]

NARRATIVE: CASE EVENT DATE: 20151118
